FAERS Safety Report 21648774 (Version 1)
Quarter: 2022Q4

REPORT INFORMATION
  Report Type: Spontaneous
  Country: AT (occurrence: AT)
  Receive Date: 20221128
  Receipt Date: 20221128
  Transmission Date: 20230113
  Serious: Yes (Other)
  Sender: FDA-Public Use
  Company Number: AT-BRISTOL-MYERS SQUIBB COMPANY-2022-095173

PATIENT
  Age: 80 Year
  Sex: Female
  Weight: 90 kg

DRUGS (17)
  1. DEXAMETHASONE [Suspect]
     Active Substance: DEXAMETHASONE
     Indication: Product used for unknown indication
     Dosage: 1 EVERY 2ND WEEK
     Route: 065
     Dates: start: 20201127
  2. DEXAMETHASONE [Suspect]
     Active Substance: DEXAMETHASONE
     Dosage: D1, 8, 15, 22 (1 EVERY 2ND WEEK)
     Route: 065
     Dates: start: 20211126, end: 20220121
  3. POMALIDOMIDE [Suspect]
     Active Substance: POMALIDOMIDE
     Indication: Plasma cell myeloma refractory
     Route: 065
     Dates: start: 20211126, end: 20220121
  4. POMALIDOMIDE [Suspect]
     Active Substance: POMALIDOMIDE
     Route: 065
     Dates: start: 20210521
  5. POMALIDOMIDE [Suspect]
     Active Substance: POMALIDOMIDE
     Route: 065
     Dates: start: 20210205
  6. POMALIDOMIDE [Suspect]
     Active Substance: POMALIDOMIDE
     Dosage: 0-0-0-1
     Route: 048
     Dates: end: 20220201
  7. POMALIDOMIDE [Suspect]
     Active Substance: POMALIDOMIDE
     Route: 065
     Dates: start: 20191122
  8. DARATUMUMAB [Concomitant]
     Active Substance: DARATUMUMAB
     Indication: Product used for unknown indication
     Dosage: D1, D15 (EVERY 2ND WEEK)
     Dates: start: 20210521, end: 20211022
  9. DARATUMUMAB [Concomitant]
     Active Substance: DARATUMUMAB
     Dosage: D1, D8, D15 AND D22 (EVERY 2ND WEEK)
     Route: 058
     Dates: start: 20201002
  10. DARATUMUMAB [Concomitant]
     Active Substance: DARATUMUMAB
     Dosage: D1, D15 (EVERY 2ND WEEK)
     Route: 058
     Dates: start: 20201127
  11. DARATUMUMAB [Concomitant]
     Active Substance: DARATUMUMAB
     Dosage: D1, D15 (EVERY 2ND WEEK)
     Dates: start: 20210205
  12. IXAZOMIB [Concomitant]
     Active Substance: IXAZOMIB
     Indication: Product used for unknown indication
     Dosage: D1, D8 AND D15
     Dates: start: 20200515, end: 20210205
  13. FILGRASTIM [Concomitant]
     Active Substance: FILGRASTIM
     Indication: Product used for unknown indication
     Dosage: AS NEEDED
  14. OLEOVIT [DEXPANTHENOL;RETINOL] [Concomitant]
     Indication: Product used for unknown indication
     Dosage: AS NEEDED
  15. EMPLICITI [Concomitant]
     Active Substance: ELOTUZUMAB
     Indication: Product used for unknown indication
     Dosage: D1, 8, 15, 22
     Dates: start: 20211126, end: 20220121
  16. LOPERAMIDE HYDROCHLORIDE [Concomitant]
     Active Substance: LOPERAMIDE HYDROCHLORIDE
     Indication: Product used for unknown indication
     Dosage: AS NEEDED
  17. XGEVA [Concomitant]
     Active Substance: DENOSUMAB
     Indication: Product used for unknown indication
     Dosage: AS NEEDED

REACTIONS (4)
  - Glycosylated haemoglobin increased [Not Recovered/Not Resolved]
  - Plasma cell myeloma [Unknown]
  - Diarrhoea [Unknown]
  - Nausea [Unknown]

NARRATIVE: CASE EVENT DATE: 20210521
